FAERS Safety Report 18724728 (Version 3)
Quarter: 2021Q1

REPORT INFORMATION
  Report Type: Spontaneous
  Country: CA (occurrence: CA)
  Receive Date: 20210111
  Receipt Date: 20210217
  Transmission Date: 20210419
  Serious: Yes (Hospitalization)
  Sender: FDA-Public Use
  Company Number: CA-PFIZER INC-2020458907

PATIENT
  Age: 71 Year
  Sex: Male

DRUGS (1)
  1. MYLOTARG [Suspect]
     Active Substance: GEMTUZUMAB OZOGAMICIN
     Dosage: 2.4 MG IN DAY 1 OF CONSOLIDATION CHEMOTHERAPY CYCLE
     Dates: start: 20201211

REACTIONS (3)
  - Off label use [Unknown]
  - Product use issue [Unknown]
  - COVID-19 [Recovering/Resolving]
